FAERS Safety Report 4286581-X (Version None)
Quarter: 2004Q1

REPORT INFORMATION
  Report Type: 
  Country: None (occurrence: None)
  Receive Date: 20040205
  Receipt Date: 20040123
  Transmission Date: 20041129
  Serious: Yes (Hospitalization, Other)
  Sender: FDA-Public Use
  Company Number: C2003-3159.01

PATIENT
  Age: 62 Year
  Sex: Female
  Weight: 65.7716 kg

DRUGS (6)
  1. VERAPAMIL HYDROCHLORIDE [Suspect]
     Indication: CLUSTER HEADACHE
     Dosage: 240 MG QD, ORAL
     Route: 048
     Dates: start: 20031112, end: 20031125
  2. VERAPAMIL HYDROCHLORIDE [Suspect]
     Indication: MIGRAINE
     Dosage: 240 MG QD, ORAL
     Route: 048
     Dates: start: 20031112, end: 20031125
  3. CONJUGATED ESTROGENS [Concomitant]
  4. HYDROCODONE BITARTRATE [Concomitant]
  5. ACETAMINOPHEN [Concomitant]
  6. OMEPRAZOLE [Concomitant]

REACTIONS (22)
  - ABDOMINAL DISTENSION [None]
  - ABDOMINAL PAIN [None]
  - ABNORMAL DREAMS [None]
  - ASTHENIA [None]
  - BLOOD PRESSURE INCREASED [None]
  - CONSTIPATION [None]
  - DIZZINESS [None]
  - DYSPHASIA [None]
  - DYSPHONIA [None]
  - FEELING HOT [None]
  - FLUSHING [None]
  - HALLUCINATION [None]
  - IRRITABLE BOWEL SYNDROME [None]
  - MUSCLE SPASTICITY [None]
  - MYALGIA [None]
  - PHARYNGOLARYNGEAL PAIN [None]
  - SWELLING FACE [None]
  - SYNCOPE [None]
  - TREMOR [None]
  - VISION BLURRED [None]
  - VOMITING [None]
  - WEIGHT INCREASED [None]
